FAERS Safety Report 7039933-9 (Version None)
Quarter: 2010Q4

REPORT INFORMATION
  Report Type: 
  Country: None (occurrence: None)
  Receive Date: 20101012
  Receipt Date: 20100930
  Transmission Date: 20110411
  Serious: Yes (Other)
  Sender: FDA-Public Use
  Company Number: US-PFIZER INC-2010125070

PATIENT
  Age: 85 Year
  Sex: Female

DRUGS (7)
  1. XALATAN [Suspect]
     Indication: INTRAOCULAR PRESSURE INCREASED
     Dosage: UNK, DAILY
     Dates: start: 20100101
  2. BRIMONIDINE [Interacting]
     Dosage: UNK DOSE, DAILY
  3. SYSTANE [Interacting]
     Dosage: 1 GTT, BOTH EYES, 2X/DAY
     Route: 047
  4. XANAX [Concomitant]
     Indication: ANXIETY
     Dosage: UNK
  5. XANAX [Concomitant]
     Indication: PANIC ATTACK
  6. AVALIDE [Concomitant]
     Indication: HYPERTENSION
     Dosage: 150/12.5MG DAILY
  7. PLAVIX [Concomitant]
     Indication: PROPHYLAXIS
     Dosage: 75 MG, 1X/DAY

REACTIONS (2)
  - DRUG INTERACTION [None]
  - HEADACHE [None]
